FAERS Safety Report 20713604 (Version 1)
Quarter: 2022Q2

REPORT INFORMATION
  Report Type: Spontaneous
  Country: US (occurrence: None)
  Receive Date: 20220414
  Receipt Date: 20220414
  Transmission Date: 20220721
  Serious: Yes (Hospitalization)
  Sender: FDA-Public Use
  Company Number: None

PATIENT
  Age: 61 Year
  Sex: Female

DRUGS (1)
  1. PLEGRIDY [Suspect]
     Active Substance: PEGINTERFERON BETA-1A
     Indication: Multiple sclerosis
     Dosage: OTHER FREQUENCY : EVERY14DAYS;?
     Route: 058
     Dates: start: 20220211

REACTIONS (3)
  - Urinary tract infection [None]
  - Pyelonephritis [None]
  - Therapy interrupted [None]

NARRATIVE: CASE EVENT DATE: 20220409
